FAERS Safety Report 17136114 (Version 1)
Quarter: 2019Q4

REPORT INFORMATION
  Report Type: Report from Study
  Country: US (occurrence: US)
  Receive Date: 20191210
  Receipt Date: 20191210
  Transmission Date: 20200122
  Serious: Yes (Other)
  Sender: FDA-Public Use
  Company Number: US-MYLANLABS-2019M1120501

PATIENT
  Sex: Male

DRUGS (5)
  1. ATORVASTATIN [Suspect]
     Active Substance: ATORVASTATIN
     Indication: PRODUCT USED FOR UNKNOWN INDICATION
     Dosage: UNK
  2. LENVIMA [Suspect]
     Active Substance: LENVATINIB
     Dosage: 8 MILLIGRAM, QD
     Route: 048
     Dates: start: 20191114
  3. LENVIMA [Suspect]
     Active Substance: LENVATINIB
     Dosage: 12 MILLIGRAM, QD
     Route: 048
     Dates: start: 20190928, end: 201910
  4. ATORVASTATIN [Suspect]
     Active Substance: ATORVASTATIN
     Dosage: 8 MILLIGRAM, QD
     Dates: start: 20191114
  5. LENVIMA [Suspect]
     Active Substance: LENVATINIB
     Indication: HEPATOCELLULAR CARCINOMA
     Dosage: 8 MILLIGRAM, QD
     Route: 048
     Dates: start: 20190922, end: 20190927

REACTIONS (7)
  - Decreased appetite [Recovering/Resolving]
  - Electrocardiogram QT prolonged [Not Recovered/Not Resolved]
  - Blood pressure increased [Not Recovered/Not Resolved]
  - Liver function test increased [Not Recovered/Not Resolved]
  - Fatigue [Recovering/Resolving]
  - Dizziness [Recovered/Resolved]
  - Necrosis [Not Recovered/Not Resolved]

NARRATIVE: CASE EVENT DATE: 201910
